FAERS Safety Report 4411853-5 (Version None)
Quarter: 2004Q3

REPORT INFORMATION
  Report Type: 
  Country: None (occurrence: None)
  Receive Date: 20040730
  Receipt Date: 20040726
  Transmission Date: 20050211
  Serious: Yes (Life-Threatening)
  Sender: FDA-Public Use
  Company Number: FR-BRISTOL-MYERS SQUIBB COMPANY-12652194

PATIENT
  Age: 47 Year
  Sex: Female

DRUGS (2)
  1. PRAVASTATIN [Suspect]
     Indication: HYPERCHOLESTEROLAEMIA
     Dosage: DOSAGE FORM = TABLET
     Route: 048
     Dates: end: 20040202
  2. PLAVIX [Suspect]
     Indication: MYOCARDIAL INFARCTION
     Route: 048
     Dates: start: 20040115, end: 20040202

REACTIONS (1)
  - THROMBOTIC THROMBOCYTOPENIC PURPURA [None]
